FAERS Safety Report 6348740-1 (Version None)
Quarter: 2009Q3

REPORT INFORMATION
  Report Type: 
  Country: None (occurrence: None)
  Receive Date: 20090911
  Receipt Date: 20071220
  Transmission Date: 20100115
  Serious: Yes (Hospitalization, Other)
  Sender: FDA-Public Use
  Company Number: US-ASTRAZENECA-2007UW03854

PATIENT
  Age: 541 Month
  Sex: Female
  Weight: 134.7 kg

DRUGS (15)
  1. SEROQUEL [Suspect]
     Indication: DEPRESSION
     Dosage: 50-100 MG
     Route: 048
     Dates: start: 20010913, end: 20031216
  2. SEROQUEL [Suspect]
     Route: 048
     Dates: start: 20011018, end: 20030829
  3. RISPERDAL [Concomitant]
     Dosage: 0.5-2 MG
     Route: 048
     Dates: start: 20000130
  4. RISPERDAL [Concomitant]
     Dates: start: 20040101, end: 20070701
  5. ABILIFY [Concomitant]
     Dosage: 15-30 MG
     Dates: start: 20030328
  6. ABILIFY [Concomitant]
     Dates: start: 20060101
  7. HALDOL [Concomitant]
     Dates: start: 20030101
  8. NAVANE [Concomitant]
     Dosage: 5-30 MG
     Dates: start: 19920104
  9. NAVANE [Concomitant]
     Dates: start: 20030101
  10. ZOLOFT [Concomitant]
     Dosage: 50-150 MG
     Route: 048
     Dates: start: 20000130
  11. EFFEXOR [Concomitant]
     Dosage: 37.5-225 MG
     Dates: start: 20011115
  12. COGENTIN [Concomitant]
     Route: 048
     Dates: start: 19920104
  13. KLONOPIN [Concomitant]
     Dosage: 0.25-2 MG
     Dates: start: 19920104
  14. LIPITOR [Concomitant]
     Dates: start: 20020308
  15. GLUCOPHAGE [Concomitant]
     Dosage: 250-850 MG
     Route: 048
     Dates: start: 20011011

REACTIONS (11)
  - CARBON MONOXIDE POISONING [None]
  - CEREBROVASCULAR ACCIDENT [None]
  - DIABETES MELLITUS [None]
  - DIABETIC KETOACIDOSIS [None]
  - DIABETIC RETINOPATHY [None]
  - HYPOGLYCAEMIA [None]
  - INSULIN-REQUIRING TYPE 2 DIABETES MELLITUS [None]
  - KNEE OPERATION [None]
  - MYOCARDIAL INFARCTION [None]
  - PANCREATITIS [None]
  - SURGERY [None]
